FAERS Safety Report 5911788-2 (Version None)
Quarter: 2008Q4

REPORT INFORMATION
  Report Type: 
  Country: None (occurrence: None)
  Receive Date: 20081008
  Receipt Date: 20080926
  Transmission Date: 20090506
  Serious: Yes (Hospitalization)
  Sender: FDA-Public Use
  Company Number: US-ELI_LILLY_AND_COMPANY-US200809006266

PATIENT
  Sex: Male
  Weight: 78.912 kg

DRUGS (21)
  1. PEMETREXED [Suspect]
     Indication: NON-SMALL CELL LUNG CANCER
     Dosage: 490.2 MG/M2, OTHER
     Route: 042
     Dates: start: 20080804
  2. VITAMIN B-12 [Concomitant]
     Dosage: 1 MG, UNK
     Route: 058
     Dates: start: 20080721
  3. FOLIC ACID [Concomitant]
     Dosage: 1 MG, DAILY (1/D)
     Route: 048
     Dates: start: 20080721
  4. FUROSEMIDE [Concomitant]
     Dosage: 20 MG, DAILY (1/D)
     Route: 048
     Dates: start: 20080825
  5. LISINOPRIL [Concomitant]
     Dosage: 10 MG, DAILY (1/D)
     Route: 048
     Dates: start: 20080825
  6. PRILOSEC [Concomitant]
     Dosage: 40 MG, DAILY (1/D)
     Route: 048
     Dates: start: 20080804
  7. ADVAIR DISKUS 100/50 [Concomitant]
  8. ASPIRIN [Concomitant]
     Dosage: 81 MG, DAILY (1/D)
     Route: 048
  9. BUPROPION HCL [Concomitant]
     Dosage: 100 MG, DAILY (1/D)
  10. FERROUS SULFATE [Concomitant]
     Dosage: 650 MG, UNK
  11. LIPITOR [Concomitant]
     Dosage: 20 MG, UNK
  12. MEGESTROL ACETATE [Concomitant]
     Dosage: 40 MG, DAILY (1/D)
  13. METOPROLOL SUCCINATE [Concomitant]
     Dosage: 20 MG, UNK
  14. MIRTAZAPINE [Concomitant]
     Dosage: 15 MG, EACH EVENING
     Route: 048
  15. MULTI-VITAMIN [Concomitant]
     Dosage: UNK, DAILY (1/D)
     Route: 048
  16. SPIRIVA [Concomitant]
  17. TOPROL-XL [Concomitant]
     Dosage: 50 MG, DAILY (1/D)
  18. DEXAMETHASONE [Concomitant]
  19. ERLOTINIB [Concomitant]
     Dosage: 150 MG, DAILY (1/D)
     Route: 048
     Dates: start: 20080613, end: 20080905
  20. K-DUR [Concomitant]
  21. OXYGEN [Concomitant]

REACTIONS (2)
  - ANAEMIA [None]
  - HYPOVOLAEMIA [None]
